FAERS Safety Report 25327202 (Version 1)
Quarter: 2025Q2

REPORT INFORMATION
  Report Type: Spontaneous
  Country: RU (occurrence: RU)
  Receive Date: 20250517
  Receipt Date: 20250517
  Transmission Date: 20250717
  Serious: Yes (Other)
  Sender: ALEXION PHARMACEUTICALS
  Company Number: RU-ASTRAZENECA-202505RUS010656RU

PATIENT
  Age: 75 Year
  Weight: 82 kg

DRUGS (1)
  1. DAPAGLIFLOZIN [Suspect]
     Active Substance: DAPAGLIFLOZIN
     Indication: Type 2 diabetes mellitus
     Dosage: 10 MILLIGRAM, QD

REACTIONS (2)
  - Eye pruritus [Recovering/Resolving]
  - Scleral hyperaemia [Recovering/Resolving]
